FAERS Safety Report 19900680 (Version 1)
Quarter: 2021Q3

REPORT INFORMATION
  Report Type: Spontaneous
  Country: US (occurrence: US)
  Receive Date: 20210930
  Receipt Date: 20210930
  Transmission Date: 20211014
  Serious: Yes (Other)
  Sender: FDA-Public Use
  Company Number: None

PATIENT
  Age: 47 Year
  Sex: Male
  Weight: 122 kg

DRUGS (1)
  1. BAMLANIVIMAB/ETESEVIMAB [Suspect]
     Active Substance: BAMLANIVIMAB\ETESEVIMAB

REACTIONS (4)
  - Lethargy [None]
  - Pallor [None]
  - Hyperhidrosis [None]
  - Arthralgia [None]

NARRATIVE: CASE EVENT DATE: 20210930
